FAERS Safety Report 9479664 (Version 2)
Quarter: 2013Q3

REPORT INFORMATION
  Report Type: Report from Study
  Country: NL (occurrence: NL)
  Receive Date: 20130827
  Receipt Date: 20130827
  Transmission Date: 20140515
  Serious: Yes (Hospitalization)
  Sender: FDA-Public Use
  Company Number: PHHO2009NL16075

PATIENT
  Age: 76 Year
  Sex: Male

DRUGS (1)
  1. ALISKIREN [Suspect]
     Indication: CARDIOVASCULAR DISORDER
     Route: 048
     Dates: start: 20080918

REACTIONS (2)
  - Dehydration [Recovering/Resolving]
  - Decreased appetite [Recovering/Resolving]
